FAERS Safety Report 20714217 (Version 1)
Quarter: 2022Q2

REPORT INFORMATION
  Report Type: Spontaneous
  Country: US (occurrence: None)
  Receive Date: 20220414
  Receipt Date: 20220414
  Transmission Date: 20220721
  Serious: No
  Sender: FDA-Public Use
  Company Number: None

PATIENT
  Sex: Female

DRUGS (1)
  1. STIVARGA [Suspect]
     Active Substance: REGORAFENIB
     Indication: Lung neoplasm malignant
     Dosage: OTHER QUANTITY : SEE EVENT;?OTHER FREQUENCY : SEE EVENT;?
     Route: 048
     Dates: start: 20220202, end: 20220414

REACTIONS (5)
  - Oral pain [None]
  - Dysphonia [None]
  - Eating disorder [None]
  - Diarrhoea [None]
  - Drug ineffective [None]
